FAERS Safety Report 4445458-7 (Version None)
Quarter: 2004Q3

REPORT INFORMATION
  Report Type: 
  Country: None (occurrence: None)
  Receive Date: 20040802
  Receipt Date: 20040423
  Transmission Date: 20050211
  Serious: No
  Sender: FDA-Public Use
  Company Number: 2004-115724-NL

PATIENT
  Age: 43 Year
  Sex: Female
  Weight: 63.6 kg

DRUGS (5)
  1. NUVARING [Suspect]
     Indication: MENSTRUAL DISORDER
     Dosage: DF DAILY VAGINAL
     Route: 067
     Dates: start: 20040415, end: 20040423
  2. ALEVE [Concomitant]
  3. MULTI-VITAMINS [Concomitant]
  4. CALCIUM [Concomitant]
  5. MAGNESIUM [Concomitant]

REACTIONS (10)
  - ASTHENIA [None]
  - DEPRESSION [None]
  - HEADACHE [None]
  - INSOMNIA [None]
  - IRRITABILITY [None]
  - METRORRHAGIA [None]
  - MUSCLE CRAMP [None]
  - PAIN IN EXTREMITY [None]
  - PALPITATIONS [None]
  - VULVOVAGINAL DISCOMFORT [None]
